FAERS Safety Report 9439310 (Version 2)
Quarter: 2013Q4

REPORT INFORMATION
  Report Type: Report from Study
  Country: AU (occurrence: AU)
  Receive Date: 20130804
  Receipt Date: 20131029
  Transmission Date: 20140711
  Serious: Yes (Hospitalization, Other)
  Sender: FDA-Public Use
  Company Number: PHHY2009AU36159

PATIENT
  Sex: Female

DRUGS (5)
  1. GLIVEC [Suspect]
     Indication: CHRONIC MYELOID LEUKAEMIA
     Dosage: 400 MG, UNK
     Route: 048
     Dates: start: 20011204
  2. INTERFERON [Suspect]
  3. VITAMIN D [Concomitant]
     Dosage: UNK UKN, UNK
  4. MAGNESIUM [Concomitant]
     Dosage: UNK UKN, UNK
  5. KRILL OMEGA RED OIL [Concomitant]
     Dosage: UNK UKN, UNK

REACTIONS (15)
  - Movement disorder [Unknown]
  - Bone pain [Unknown]
  - Chest pain [Unknown]
  - Eye haemorrhage [Unknown]
  - Malignant neoplasm progression [Not Recovered/Not Resolved]
  - Chromosome analysis abnormal [Not Recovered/Not Resolved]
  - Periorbital oedema [Unknown]
  - Feeling abnormal [Not Recovered/Not Resolved]
  - Muscle spasms [Unknown]
  - Nausea [Not Recovered/Not Resolved]
  - Headache [Not Recovered/Not Resolved]
  - Arthralgia [Not Recovered/Not Resolved]
  - Pain in extremity [Not Recovered/Not Resolved]
  - Abdominal pain upper [Not Recovered/Not Resolved]
  - Eye swelling [Not Recovered/Not Resolved]
